FAERS Safety Report 5106819-6 (Version None)
Quarter: 2006Q3

REPORT INFORMATION
  Report Type: 
  Country: None (occurrence: None)
  Receive Date: 20060731
  Receipt Date: 20051005
  Transmission Date: 20061208
  Serious: Yes (Death)
  Sender: FDA-Public Use
  Company Number: US-JNJFOC-20051001631

PATIENT
  Age: 26 Year
  Sex: Male
  Weight: 81.6475 kg

DRUGS (1)
  1. RISPERDAL [Suspect]
     Indication: SCHIZOPHRENIA
     Dosage: 5 MG, 1 IN 1 DAY, ORAL
     Route: 048
     Dates: start: 20030101, end: 20040801

REACTIONS (3)
  - COMPLETED SUICIDE [None]
  - INSOMNIA [None]
  - WEIGHT DECREASED [None]
